FAERS Safety Report 5455061-8 (Version None)
Quarter: 2007Q3

REPORT INFORMATION
  Report Type: 
  Country: None (occurrence: None)
  Receive Date: 20070913
  Receipt Date: 20070823
  Transmission Date: 20080115
  Serious: Yes (Other)
  Sender: FDA-Public Use
  Company Number: 6037421

PATIENT
  Age: 80 Year
  Sex: Female

DRUGS (1)
  1. CLARITHROMYCIN [Suspect]
     Indication: RESPIRATORY TRACT INFECTION BACTERIAL

REACTIONS (2)
  - EOSINOPHILIC PNEUMONIA [None]
  - PULMONARY EOSINOPHILIA [None]
